FAERS Safety Report 8358894-3 (Version None)
Quarter: 2012Q2

REPORT INFORMATION
  Report Type: 
  Country: None (occurrence: None)
  Receive Date: 20120515
  Receipt Date: 20120503
  Transmission Date: 20120825
  Serious: No
  Sender: FDA-Public Use
  Company Number: US-BIOGENIDEC-2010BI020052

PATIENT
  Sex: Female

DRUGS (1)
  1. TYSABRI [Suspect]
     Indication: MULTIPLE SCLEROSIS
     Route: 042
     Dates: start: 20100317

REACTIONS (9)
  - MYALGIA [None]
  - FEELING COLD [None]
  - HEADACHE [None]
  - MUSCULAR WEAKNESS [None]
  - DYSARTHRIA [None]
  - DISTURBANCE IN ATTENTION [None]
  - MUSCLE SPASMS [None]
  - MULTIPLE SCLEROSIS [None]
  - FATIGUE [None]
